FAERS Safety Report 9847496 (Version 2)
Quarter: 2014Q1

REPORT INFORMATION
  Report Type: Spontaneous
  Country: US (occurrence: US)
  Receive Date: 20140127
  Receipt Date: 20140127
  Transmission Date: 20141002
  Serious: Yes (Other)
  Sender: FDA-Public Use
  Company Number: US-GE HEALTHCARE MEDICAL DIAGNOSTICS-OSCN-PR-0903S-0158

PATIENT
  Age: 32 Year
  Sex: Female

DRUGS (3)
  1. OMNISCAN [Suspect]
     Indication: PRODUCT USED FOR UNKNOWN INDICATION
     Route: 042
     Dates: start: 20020912, end: 20020912
  2. MAGNEVIST [Suspect]
     Indication: HEADACHE
     Route: 042
     Dates: start: 20030311, end: 20030311
  3. MAGNEVIST [Suspect]
     Indication: DIPLOPIA
     Route: 042
     Dates: start: 20060427, end: 20060427

REACTIONS (1)
  - Nephrogenic systemic fibrosis [Not Recovered/Not Resolved]
